FAERS Safety Report 25597071 (Version 1)
Quarter: 2025Q3

REPORT INFORMATION
  Report Type: Spontaneous
  Country: EU (occurrence: EU)
  Receive Date: 20250723
  Receipt Date: 20250723
  Transmission Date: 20251020
  Serious: Yes (Death, Hospitalization, Other)
  Sender: TEVA
  Company Number: None

PATIENT
  Age: 80 Year
  Sex: Male

DRUGS (12)
  1. LEVETIRACETAM [Suspect]
     Active Substance: LEVETIRACETAM
     Indication: Epilepsy
     Dosage: 1-0-2
     Route: 065
     Dates: start: 202502
  2. Clopidogrel TAD [Concomitant]
     Indication: Product used for unknown indication
     Dosage: 1-0-0
     Route: 048
     Dates: start: 20250607, end: 20250609
  3. SODIUM BICARBONATE [Concomitant]
     Active Substance: SODIUM BICARBONATE
     Indication: Product used for unknown indication
     Dosage: 1-1-1
     Route: 048
     Dates: start: 20250607, end: 20250612
  4. ASPIRIN [Concomitant]
     Active Substance: ASPIRIN
     Indication: Product used for unknown indication
     Dosage: 1-0-0; TAH
     Route: 048
     Dates: start: 20250607, end: 20250620
  5. LEVETIRACETAM [Suspect]
     Active Substance: LEVETIRACETAM
     Indication: Epilepsy
     Dosage: 1-0-1; PZN 09478660
     Route: 048
     Dates: start: 20250610, end: 20250614
  6. TORSEMIDE [Concomitant]
     Active Substance: TORSEMIDE
     Indication: Product used for unknown indication
     Dosage: 1-0-0
     Route: 048
     Dates: start: 20250607, end: 20250611
  7. PANCRELIPASE [Concomitant]
     Active Substance: PANCRELIPASE
     Indication: Product used for unknown indication
     Dosage: 1-1-0; KREON 25000
     Route: 048
     Dates: start: 20250607, end: 20250620
  8. BISOPROLOL FUMARATE [Concomitant]
     Active Substance: BISOPROLOL FUMARATE
     Indication: Product used for unknown indication
     Dosage: 1-0-0.5
     Route: 048
     Dates: start: 20250607, end: 20250620
  9. Piperacillin plus Tazobactam Eberth [Concomitant]
     Indication: Product used for unknown indication
     Dosage: 1-1-1; 4 G / 0.5 G
     Route: 042
     Dates: start: 20250611, end: 20250620
  10. PANTOPRAZOLE SODIUM [Concomitant]
     Active Substance: PANTOPRAZOLE SODIUM
     Indication: Product used for unknown indication
     Dosage: 1-0-0
     Route: 048
     Dates: start: 20250607, end: 20250620
  11. Ampicillin plus Sulbactam Eberth [Concomitant]
     Indication: Product used for unknown indication
     Dosage: 1-1-1; PZN 11138670;  2G/1G
     Route: 042
     Dates: start: 20250607, end: 20250610
  12. SIMVASTATIN [Concomitant]
     Active Substance: SIMVASTATIN
     Indication: Product used for unknown indication
     Dosage: 0-0-1
     Route: 048
     Dates: start: 20250607, end: 20250609

REACTIONS (4)
  - Stevens-Johnson syndrome [Fatal]
  - Toxic epidermal necrolysis [Fatal]
  - Skin reaction [Unknown]
  - Septic shock [Fatal]

NARRATIVE: CASE EVENT DATE: 20250201
